FAERS Safety Report 7711234-2 (Version None)
Quarter: 2011Q3

REPORT INFORMATION
  Report Type: 
  Country: None (occurrence: None)
  Receive Date: 20110826
  Receipt Date: 20110822
  Transmission Date: 20111222
  Serious: Yes (Other)
  Sender: FDA-Public Use
  Company Number: ZA-AMGEN-ZAFSP2011042592

PATIENT
  Sex: Female
  Weight: 72.4 kg

DRUGS (8)
  1. INSULIN [Concomitant]
     Dosage: 8 IU, TID
     Route: 058
     Dates: start: 20100831
  2. TITRALAC [Concomitant]
     Dosage: 2 DF, TID
     Route: 048
     Dates: start: 20110831
  3. CARVEDILOL [Concomitant]
     Dosage: 25 MG, BID
     Route: 048
     Dates: start: 20100831
  4. LYRICA [Concomitant]
     Dosage: 25 MG, UNK
     Route: 048
     Dates: start: 20100831
  5. LASIX [Suspect]
     Dosage: 20 MG, BID
     Route: 048
     Dates: start: 20110831
  6. AMITRIPTYLINE HCL [Concomitant]
     Dosage: 25 MG, UNK
     Route: 048
     Dates: start: 20100831
  7. ASPIRIN [Concomitant]
     Dosage: 150 G, UNK
     Route: 048
     Dates: start: 20110831
  8. ARANESP [Suspect]
     Indication: RENAL FAILURE CHRONIC
     Dosage: 30 A?G, QWK
     Route: 058
     Dates: start: 20110629, end: 20110818

REACTIONS (3)
  - PRURITUS [None]
  - LIVER FUNCTION TEST ABNORMAL [None]
  - DIZZINESS [None]
